FAERS Safety Report 9996463 (Version 3)
Quarter: 2014Q2

REPORT INFORMATION
  Report Type: Spontaneous
  Country: IT (occurrence: IT)
  Receive Date: 20140311
  Receipt Date: 20140422
  Transmission Date: 20141212
  Serious: Yes (Hospitalization)
  Sender: FDA-Public Use
  Company Number: PHHY2014IT026940

PATIENT
  Sex: Male

DRUGS (2)
  1. CITALOPRAM [Suspect]
     Indication: INTENTIONAL SELF-INJURY
     Dosage: 15 ML, ONCE/SINGLE
     Route: 048
     Dates: start: 20140222, end: 20140222
  2. CYMBALTA [Suspect]
     Indication: INTENTIONAL SELF-INJURY
     Dosage: 60 MG, ONCE/SINGLE
     Route: 048
     Dates: start: 20140222, end: 20140222

REACTIONS (2)
  - Sopor [Recovered/Resolved]
  - Drug abuse [Recovered/Resolved]
